FAERS Safety Report 25547087 (Version 4)
Quarter: 2025Q3

REPORT INFORMATION
  Report Type: Report from Study
  Country: US (occurrence: US)
  Receive Date: 20250714
  Receipt Date: 20250910
  Transmission Date: 20251021
  Serious: Yes (Death, Other)
  Sender: ACADIA PHARMACEUTICALS
  Company Number: US-ACADIA PHARMACEUTICALS INC.-ACA-2025-PIM-008113

PATIENT
  Age: 70 Year
  Sex: Male

DRUGS (19)
  1. NUPLAZID [Suspect]
     Active Substance: PIMAVANSERIN TARTRATE
     Indication: Parkinson^s disease
     Dosage: 34 MILLIGRAM, QD
     Route: 048
     Dates: start: 20230718
  2. ELIQUIS [Concomitant]
     Active Substance: APIXABAN
  3. CELEBREX [Concomitant]
     Active Substance: CELECOXIB
  4. PREGABALIN [Concomitant]
     Active Substance: PREGABALIN
  5. VITAMIN B12 [Concomitant]
     Active Substance: CYANOCOBALAMIN
  6. ASPIRIN [Concomitant]
     Active Substance: ASPIRIN
  7. SIMVASTATIN [Concomitant]
     Active Substance: SIMVASTATIN
  8. AMLODIPINE [Concomitant]
     Active Substance: AMLODIPINE BESYLATE
  9. CARBIDOPA\LEVODOPA [Concomitant]
     Active Substance: CARBIDOPA\LEVODOPA
  10. ROPINIROLE [Concomitant]
     Active Substance: ROPINIROLE
  11. VITAMIN D3 [Concomitant]
     Active Substance: CHOLECALCIFEROL
  12. FUROSEMIDE [Concomitant]
     Active Substance: FUROSEMIDE
  13. POTASSIUM CHLORIDE [Concomitant]
     Active Substance: POTASSIUM CHLORIDE
  14. SOTALOL [Concomitant]
     Active Substance: SOTALOL
  15. LYRICA [Concomitant]
     Active Substance: PREGABALIN
  16. METOPROLOL [Concomitant]
     Active Substance: METOPROLOL
  17. RIVASTIGMINE [Concomitant]
     Active Substance: RIVASTIGMINE
  18. CELECOXIB [Concomitant]
     Active Substance: CELECOXIB
  19. Nowinove [Concomitant]

REACTIONS (2)
  - Death [Fatal]
  - Hallucination [Unknown]

NARRATIVE: CASE EVENT DATE: 20250814
